FAERS Safety Report 8367618-5 (Version None)
Quarter: 2012Q2

REPORT INFORMATION
  Report Type: 
  Country: None (occurrence: None)
  Receive Date: 20120517
  Receipt Date: 20120507
  Transmission Date: 20120825
  Serious: Yes (Other)
  Sender: FDA-Public Use
  Company Number: US-MYLANLABS-2012S1007664

PATIENT
  Age: 71 Year
  Sex: Female
  Weight: 56.25 kg

DRUGS (7)
  1. OMEPRAZOLE [Suspect]
     Indication: ABDOMINAL DISCOMFORT
     Route: 048
     Dates: start: 20111212, end: 20120101
  2. IBUPROFEN [Concomitant]
     Dosage: ^REPORTED AS USING SOMETIMES^
  3. TRAMADOL HYDROCHLORIDE [Concomitant]
  4. POTASSIUM CHLORIDE [Concomitant]
  5. MOBIC [Concomitant]
  6. OMEPRAZOLE [Suspect]
     Route: 048
     Dates: start: 20120301, end: 20120401
  7. LASIX [Concomitant]

REACTIONS (4)
  - RECTAL HAEMORRHAGE [None]
  - ABDOMINAL PAIN [None]
  - VOMITING [None]
  - PAIN [None]
